FAERS Safety Report 7590780-9 (Version None)
Quarter: 2011Q3

REPORT INFORMATION
  Report Type: 
  Country: None (occurrence: None)
  Receive Date: 20110705
  Receipt Date: 20110621
  Transmission Date: 20111222
  Serious: Yes (Hospitalization)
  Sender: FDA-Public Use
  Company Number: PHHY2011FR55499

PATIENT
  Age: 83 Year
  Sex: Male

DRUGS (7)
  1. FUROSEMIDE [Concomitant]
  2. COUMADIN [Concomitant]
  3. ALLOPURINOL [Concomitant]
  4. RASILEZ [Suspect]
     Indication: HYPERTENSION
     Dosage: 150 MG, QD
     Dates: start: 20090801
  5. LEVOTHYROXINE SODIUM [Concomitant]
  6. DIACOR [Concomitant]
     Dosage: UNK
  7. RASILEZ [Suspect]
     Dosage: 300 MG, QD

REACTIONS (2)
  - ATRIAL FIBRILLATION [None]
  - BRADYCARDIA [None]
